FAERS Safety Report 10223823 (Version 4)
Quarter: 2016Q4

REPORT INFORMATION
  Report Type: Spontaneous
  Country: CA (occurrence: CA)
  Receive Date: 20140609
  Receipt Date: 20161130
  Transmission Date: 20170206
  Serious: Yes (Other)
  Sender: FDA-Public Use
  Company Number: CA-JNJFOC-20140601674

PATIENT
  Age: 6 Decade
  Sex: Female
  Weight: 101.5 kg

DRUGS (14)
  1. METHOTREXATE. [Concomitant]
     Active Substance: METHOTREXATE
     Route: 065
  2. ELETRIPTAN HYDROBROMIDE [Concomitant]
     Active Substance: ELETRIPTAN HYDROBROMIDE
     Route: 065
  3. ACTEMRA [Suspect]
     Active Substance: TOCILIZUMAB
     Indication: ARTHRITIS
     Route: 042
     Dates: start: 20130308, end: 20130405
  4. MELOXICAM. [Concomitant]
     Active Substance: MELOXICAM
     Route: 065
  5. PANTOPRAZOLE SODIUM. [Concomitant]
     Active Substance: PANTOPRAZOLE SODIUM
     Route: 065
  6. BENADRYL [Suspect]
     Active Substance: DIPHENHYDRAMINE HYDROCHLORIDE
     Indication: PRODUCT USED FOR UNKNOWN INDICATION
     Route: 048
  7. ACTEMRA [Suspect]
     Active Substance: TOCILIZUMAB
     Indication: ANKYLOSING SPONDYLITIS
     Route: 042
     Dates: start: 20130308, end: 20130405
  8. ACTEMRA [Suspect]
     Active Substance: TOCILIZUMAB
     Indication: SPONDYLOARTHROPATHY
     Route: 042
     Dates: start: 20130308, end: 20130405
  9. ACTEMRA [Suspect]
     Active Substance: TOCILIZUMAB
     Indication: ANKYLOSING SPONDYLITIS
     Route: 042
     Dates: start: 20130405
  10. ACTEMRA [Suspect]
     Active Substance: TOCILIZUMAB
     Indication: SPONDYLOARTHROPATHY
     Route: 042
     Dates: start: 20130405
  11. ACETAMINOPHEN. [Concomitant]
     Active Substance: ACETAMINOPHEN
     Route: 065
  12. FOLIC ACID. [Concomitant]
     Active Substance: FOLIC ACID
     Route: 065
  13. PAROXETINE. [Concomitant]
     Active Substance: PAROXETINE
     Route: 065
  14. ACTEMRA [Suspect]
     Active Substance: TOCILIZUMAB
     Indication: ARTHRITIS
     Route: 042
     Dates: start: 20130405

REACTIONS (12)
  - Blister [Unknown]
  - Infusion related reaction [Unknown]
  - Lip swelling [Unknown]
  - Pruritus [Unknown]
  - Migraine [Recovered/Resolved]
  - Gait disturbance [Unknown]
  - Glossodynia [Unknown]
  - Joint swelling [Recovered/Resolved]
  - Weight increased [Not Recovered/Not Resolved]
  - Dyspepsia [Unknown]
  - Somnolence [Unknown]
  - Lip pain [Unknown]

NARRATIVE: CASE EVENT DATE: 201303
